FAERS Safety Report 17536387 (Version 2)
Quarter: 2020Q2

REPORT INFORMATION
  Report Type: Spontaneous
  Country: PL (occurrence: PL)
  Receive Date: 20200313
  Receipt Date: 20200611
  Transmission Date: 20200713
  Serious: Yes (Other)
  Sender: FDA-Public Use
  Company Number: PL-AUROBINDO-AUR-APL-2020-012347

PATIENT
  Age: 71 Year
  Sex: Female

DRUGS (15)
  1. ARIPIPRAZOLE  TABLETS [Suspect]
     Active Substance: ARIPIPRAZOLE
     Indication: BIPOLAR DISORDER
  2. AMIODARONE [Suspect]
     Active Substance: AMIODARONE
     Indication: CARDIOVASCULAR DISORDER
     Dosage: UNK
     Route: 065
  3. LISINOPRIL. [Concomitant]
     Active Substance: LISINOPRIL
     Indication: PRODUCT USED FOR UNKNOWN INDICATION
     Dosage: UNK
     Route: 065
  4. OLANZAPINE. [Concomitant]
     Active Substance: OLANZAPINE
     Indication: SCHIZOPHRENIA
     Dosage: UNK
     Route: 065
  5. DABIGATRAN [Concomitant]
     Active Substance: DABIGATRAN
     Indication: BIPOLAR DISORDER
  6. TORASEMIDE [Concomitant]
     Active Substance: TORSEMIDE
     Indication: CARDIOVASCULAR DISORDER
     Dosage: UNK
     Route: 065
  7. EPLERENONE. [Concomitant]
     Active Substance: EPLERENONE
     Indication: CARDIOVASCULAR DISORDER
     Dosage: UNK
     Route: 065
  8. METOPROLOL. [Interacting]
     Active Substance: METOPROLOL
     Indication: CARDIOVASCULAR DISORDER
     Dosage: UNK
     Route: 065
  9. METOPROLOL. [Concomitant]
     Active Substance: METOPROLOL
     Indication: CARDIOVASCULAR DISORDER
     Dosage: UNK
     Route: 065
  10. ARIPIPRAZOLE  TABLETS [Suspect]
     Active Substance: ARIPIPRAZOLE
     Indication: SCHIZOPHRENIA
     Dosage: UNK
     Route: 065
  11. PAROXETINE. [Interacting]
     Active Substance: PAROXETINE
     Indication: ANTIDEPRESSANT THERAPY
     Dosage: UNK
     Route: 065
  12. OLANZAPINE. [Concomitant]
     Active Substance: OLANZAPINE
     Indication: BIPOLAR DISORDER
  13. DABIGATRAN [Concomitant]
     Active Substance: DABIGATRAN
     Indication: SCHIZOPHRENIA
     Dosage: UNK
     Route: 065
  14. RAMIPRIL. [Concomitant]
     Active Substance: RAMIPRIL
     Indication: CARDIOVASCULAR DISORDER
     Dosage: UNK
     Route: 065
  15. HYDROCHLOROTHIAZIDE. [Concomitant]
     Active Substance: HYDROCHLOROTHIAZIDE
     Indication: PRODUCT USED FOR UNKNOWN INDICATION
     Dosage: UNK
     Route: 065

REACTIONS (6)
  - Bradycardia [Unknown]
  - Toxicity to various agents [Unknown]
  - Drug interaction [Unknown]
  - Akathisia [Unknown]
  - Tremor [Unknown]
  - Extrapyramidal disorder [Unknown]
